FAERS Safety Report 4634561-4 (Version None)
Quarter: 2005Q2

REPORT INFORMATION
  Report Type: 
  Country: None (occurrence: None)
  Receive Date: 20050411
  Receipt Date: 20050329
  Transmission Date: 20051028
  Serious: Yes (Death, Hospitalization, Other)
  Sender: FDA-Public Use
  Company Number: GB-2005-004571

PATIENT
  Age: 65 Year
  Sex: Male

DRUGS (3)
  1. FLUDARABINE PHOSPHATE [Suspect]
     Indication: WALDENSTROM'S MACROGLOBULINAEMIA
  2. RITUXIMAB [Concomitant]
  3. CHLORAMBUCIL (CHLORAMBUCIL) [Concomitant]

REACTIONS (16)
  - ANAEMIA [None]
  - BEDRIDDEN [None]
  - BLOOD IMMUNOGLOBULIN M INCREASED [None]
  - BRONCHOPNEUMONIA [None]
  - CACHEXIA [None]
  - DERMATITIS [None]
  - HYPOCOMPLEMENTAEMIA [None]
  - LICHEN PLANUS [None]
  - LOWER RESPIRATORY TRACT INFECTION [None]
  - LYMPHOPENIA [None]
  - MALIGNANT NEOPLASM PROGRESSION [None]
  - PARANEOPLASTIC SYNDROME [None]
  - RASH ERYTHEMATOUS [None]
  - SKIN HAEMORRHAGE [None]
  - THROMBOCYTOPENIA [None]
  - VISUAL DISTURBANCE [None]
